FAERS Safety Report 6788374-8 (Version None)
Quarter: 2010Q2

REPORT INFORMATION
  Report Type: 
  Country: None (occurrence: None)
  Receive Date: 20100623
  Receipt Date: 20090514
  Transmission Date: 20101027
  Serious: Yes (Other)
  Sender: FDA-Public Use
  Company Number: US-PFIZER INC-2008002277

PATIENT
  Sex: Female
  Weight: 84 kg

DRUGS (6)
  1. PROVERA [Suspect]
     Indication: HORMONE REPLACEMENT THERAPY
     Dosage: 5 MG, UNK
     Route: 048
     Dates: start: 19950110, end: 20000228
  2. PREMARIN [Suspect]
     Indication: HORMONE REPLACEMENT THERAPY
     Dosage: 0.625 MG, UNK
     Route: 048
     Dates: start: 19950110, end: 20000228
  3. ENALAPRIL [Concomitant]
     Indication: HYPERTENSION
     Dosage: 10 MG, 1X/DAY
     Dates: start: 19980101
  4. ISOSORBIDE [Concomitant]
     Indication: ANGINA PECTORIS
     Dosage: 30 MG, 2X/DAY
     Dates: start: 19980101
  5. DILTIAZEM [Concomitant]
     Indication: HYPERTENSION
     Dosage: 60 MG, 4X/DAY
     Dates: start: 19980101
  6. DILTIAZEM [Concomitant]
     Indication: ANGINA PECTORIS

REACTIONS (1)
  - BREAST CANCER [None]
